FAERS Safety Report 23220411 (Version 1)
Quarter: 2023Q4

REPORT INFORMATION
  Report Type: Spontaneous
  Country: RO (occurrence: RO)
  Receive Date: 20231123
  Receipt Date: 20231123
  Transmission Date: 20240110
  Serious: Yes (Death, Other)
  Sender: FDA-Public Use
  Company Number: RO-ASPEN-GLO2023RO004543

PATIENT
  Age: 37 Year
  Sex: Female

DRUGS (7)
  1. BUSULFAN [Suspect]
     Active Substance: BUSULFAN
     Indication: Bone marrow conditioning regimen
     Dosage: 3.2 MG/KG, 1 DOSE DAILY X 2 DAYS (DAY - 3, DAY - 2)
     Route: 065
  2. CYCLOPHOSPHAMIDE [Suspect]
     Active Substance: CYCLOPHOSPHAMIDE
     Indication: Transplant
     Dosage: 14.5 MG/KG, 1 DOSE DAILY X 2 DAYS (DAY - 6, DAY - 5)
     Route: 065
  3. FLUDARABINE [Suspect]
     Active Substance: FLUDARABINE PHOSPHATE
     Dosage: 30 MG/M2/DAY X 5 DAYS (DAY - 6, DAY - 5, DAY - 4, DAY - 3, DAY - 2)
     Route: 065
  4. FLUDARABINE [Suspect]
     Active Substance: FLUDARABINE PHOSPHATE
     Indication: Transplant
     Dosage: 40 MG/M2, 1 DOSE DAILY IN DAY - 5, DAY - 4, DAY - 3 AND DAY - 2
     Route: 065
  5. MYCOPHENOLATE MOFETIL [Suspect]
     Active Substance: MYCOPHENOLATE MOFETIL
     Indication: Transplant
     Dosage: 15 MG/KG/DOSE IN 2-3 DOSE PER DAY FROM DAY +5
     Route: 065
  6. MELPHALAN [Suspect]
     Active Substance: MELPHALAN
     Indication: Bone marrow conditioning regimen
     Dosage: 140 MG/M2, 1 DOSE DAILY ON DAY 6
     Route: 065
  7. TACROLIMUS [Suspect]
     Active Substance: TACROLIMUS
     Indication: Transplant
     Dosage: 0.12 MG/KG/DAY DIVIDED INTO TWO DOSES FROM DAY + 5
     Route: 065

REACTIONS (5)
  - Multiple organ dysfunction syndrome [Fatal]
  - Pneumonia [Fatal]
  - Off label use [Fatal]
  - Genital haemorrhage [Unknown]
  - Mucosal inflammation [Unknown]
